FAERS Safety Report 22635174 (Version 1)
Quarter: 2023Q2

REPORT INFORMATION
  Report Type: Spontaneous
  Country: US (occurrence: None)
  Receive Date: 20230620
  Receipt Date: 20230620
  Transmission Date: 20230722
  Serious: Yes (Hospitalization)
  Sender: FDA-Public Use
  Company Number: None

PATIENT
  Sex: Female

DRUGS (6)
  1. MAYZENT [Suspect]
     Active Substance: SIPONIMOD
     Indication: Multiple sclerosis
     Dosage: FREQUENCY : DAILY;?
     Route: 048
     Dates: start: 20201007
  2. B COMPLEX CAP [Concomitant]
  3. BACLOFEN TAB [Concomitant]
  4. MULTIVITAMIN TAB [Concomitant]
  5. VITAMIN D CAP [Concomitant]
  6. ZINC TAB [Concomitant]

REACTIONS (3)
  - Muscular weakness [None]
  - Therapy interrupted [None]
  - Thrombosis [None]
